FAERS Safety Report 10591005 (Version 6)
Quarter: 2018Q2

REPORT INFORMATION
  Report Type: Spontaneous
  Country: JP (occurrence: JP)
  Receive Date: 20141118
  Receipt Date: 20180612
  Transmission Date: 20180711
  Serious: Yes (Death, Hospitalization)
  Sender: FDA-Public Use
  Company Number: PHHY2014JP144017

PATIENT
  Age: 78 Year
  Sex: Female

DRUGS (13)
  1. LASIX [Concomitant]
     Active Substance: FUROSEMIDE
     Indication: ANURIA
     Dosage: 40 MG, 6QD
     Route: 048
     Dates: start: 20130530
  2. EXELON PATCH [Suspect]
     Active Substance: RIVASTIGMINE
     Dosage: 13.5MG RIVASTIGMINE BASE DOSE (6.9 MG/24 HOURS)
     Route: 062
     Dates: start: 20110926
  3. EBRANTIL [Concomitant]
     Active Substance: URAPIDIL
     Indication: HYPERTENSION
     Dosage: 60 MG, BID
     Route: 048
     Dates: start: 20121109
  4. EXELON PATCH [Suspect]
     Active Substance: RIVASTIGMINE
     Dosage: 9.5 MG, DAILY (9.5/24HOURS)
     Route: 062
  5. TAKEPRON [Concomitant]
     Active Substance: LANSOPRAZOLE
     Indication: GASTROOESOPHAGEAL REFLUX DISEASE
     Dosage: 15 MG, QD
     Route: 048
     Dates: start: 20120101
  6. ALESION [Concomitant]
     Active Substance: EPINASTINE HYDROCHLORIDE
     Indication: PRURITUS
     Dosage: 20 MG, QD
     Route: 048
     Dates: start: 20120419
  7. EXELON PATCH [Suspect]
     Active Substance: RIVASTIGMINE
     Dosage: 9MG RIVASTIGMINE BASE DOSE (4.6 MG/24 HOURS)
     Route: 062
     Dates: start: 20110826, end: 20110925
  8. FERROMIA [Concomitant]
     Active Substance: SODIUM FERROUS CITRATE
     Indication: NEPHROGENIC ANAEMIA
     Dosage: 50 MG, BID
     Route: 048
     Dates: start: 20120720
  9. EXELON PATCH [Suspect]
     Active Substance: RIVASTIGMINE
     Dosage: 18 MG, QD
     Route: 062
     Dates: start: 20111007
  10. ADALAT [Concomitant]
     Active Substance: NIFEDIPINE
     Indication: HYPERTENSION
     Dosage: 40 MG, QD
     Route: 048
     Dates: start: 20120419
  11. AZILVA [Concomitant]
     Active Substance: AZILSARTAN KAMEDOXOMIL
     Indication: HYPERTENSION
     Dosage: 40 MG, QD
     Route: 048
     Dates: start: 20120928
  12. DEPAS [Concomitant]
     Active Substance: ETIZOLAM
     Indication: SLEEP DISORDER
     Dosage: 0.5 MG, QD
     Route: 048
     Dates: start: 20120924
  13. EXELON PATCH [Suspect]
     Active Substance: RIVASTIGMINE
     Indication: DEMENTIA ALZHEIMER^S TYPE
     Dosage: 4.5MG RIVASTIGMINE BASE DOSE (1.9 MG/24 HOURS)
     Route: 062
     Dates: start: 20110729, end: 20110825

REACTIONS (9)
  - Cardiac failure acute [Fatal]
  - Thalamus haemorrhage [Recovered/Resolved with Sequelae]
  - Blood cholinesterase decreased [Unknown]
  - Wheezing [Fatal]
  - Renal failure [Fatal]
  - Feeding disorder [Unknown]
  - Dysarthria [Unknown]
  - Lacunar infarction [Recovered/Resolved with Sequelae]
  - Condition aggravated [Unknown]

NARRATIVE: CASE EVENT DATE: 20111007
